FAERS Safety Report 7483047-0 (Version None)
Quarter: 2011Q2

REPORT INFORMATION
  Report Type: 
  Country: None (occurrence: None)
  Receive Date: 20110516
  Receipt Date: 20100124
  Transmission Date: 20111010
  Serious: Yes (Hospitalization, Other)
  Sender: FDA-Public Use
  Company Number: US-BAYER-201012088NA

PATIENT
  Age: 52 Year
  Sex: Male
  Weight: 83 kg

DRUGS (15)
  1. TRASYLOL [Suspect]
     Indication: CORONARY ARTERY BYPASS
     Dosage: 50 ML/HR
     Route: 042
     Dates: start: 20050420, end: 20050420
  2. TRASYLOL [Suspect]
     Dosage: 150 ML/HR
     Route: 042
     Dates: start: 20050420, end: 20050420
  3. LIPITOR [Concomitant]
     Indication: BLOOD CHOLESTEROL INCREASED
     Dosage: 40 MG, QD
     Route: 048
  4. ALTACE [Concomitant]
     Indication: BLOOD PRESSURE ABNORMAL
     Dosage: 2.5 MG, QD
     Route: 048
     Dates: start: 20050419
  5. ZINACEF [Concomitant]
     Dosage: 1.5 G, UNK
     Route: 042
     Dates: start: 20050420
  6. TARKA [Concomitant]
     Indication: BLOOD PRESSURE MANAGEMENT
     Dosage: 4/240 / ONCE A DAY
     Route: 048
     Dates: start: 20040701, end: 20050501
  7. HEPARIN [Concomitant]
     Dosage: 5000 U, UNK
     Route: 042
     Dates: start: 20050420, end: 20050420
  8. PROTAMINE SULFATE [Concomitant]
     Dosage: UNK
     Route: 042
     Dates: start: 20050420, end: 20050420
  9. ANCEF [Concomitant]
     Dosage: 1 G, UNK
     Route: 042
     Dates: start: 20050420, end: 20050420
  10. AMIODARONE HCL [Concomitant]
     Dosage: 150 MG, UNK
     Route: 042
     Dates: start: 20050420, end: 20050420
  11. VERSED [Concomitant]
     Dosage: 2 MG, UNK
     Route: 042
     Dates: start: 20050420, end: 20050420
  12. LOVENOX [Concomitant]
     Dosage: UNK
     Route: 058
     Dates: start: 20050419, end: 20050420
  13. PLAVIX [Concomitant]
     Indication: PLATELET AGGREGATION ABNORMAL
     Dosage: UNK
     Route: 048
     Dates: start: 20050418, end: 20050419
  14. COREG [Concomitant]
     Indication: BLOOD PRESSURE ABNORMAL
     Dosage: 3.125 MG, BID
     Route: 048
     Dates: start: 20050419
  15. ACETYLSALICYLIC ACID SRT [Concomitant]
     Dosage: UNK
     Route: 048
     Dates: start: 20050418, end: 20050419

REACTIONS (13)
  - RENAL IMPAIRMENT [None]
  - STRESS [None]
  - ANHEDONIA [None]
  - MULTI-ORGAN FAILURE [None]
  - RENAL INJURY [None]
  - RENAL FAILURE [None]
  - EMOTIONAL DISTRESS [None]
  - ANXIETY [None]
  - INJURY [None]
  - MYOCARDIAL INFARCTION [None]
  - UNEVALUABLE EVENT [None]
  - PAIN [None]
  - FEAR [None]
